FAERS Safety Report 10229432 (Version 1)
Quarter: 2014Q2

REPORT INFORMATION
  Report Type: Spontaneous
  Country: US (occurrence: US)
  Receive Date: 20140611
  Receipt Date: 20140611
  Transmission Date: 20141212
  Serious: No
  Sender: FDA-Public Use
  Company Number: US-009507513-1406USA002540

PATIENT
  Age: 51 Year
  Sex: Female

DRUGS (3)
  1. DULERA [Suspect]
     Indication: ASTHMA
     Dosage: 2 DF, QD (2 PUFFS DAILY)
     Route: 055
     Dates: start: 201401
  2. VERAPAMIL [Concomitant]
  3. ZOLOFT [Concomitant]

REACTIONS (3)
  - Cough [Not Recovered/Not Resolved]
  - Drug ineffective [Not Recovered/Not Resolved]
  - Incorrect dose administered [Unknown]
